FAERS Safety Report 8805028 (Version 2)
Quarter: 2012Q4

REPORT INFORMATION
  Report Type: 
  Country: US (occurrence: US)
  Receive Date: 20120924
  Receipt Date: 20121119
  Transmission Date: 20130627
  Serious: Yes (Death, Other)
  Sender: FDA-Public Use
  Company Number: US-ROCHE-1126225

PATIENT
  Sex: Male

DRUGS (3)
  1. AVASTIN [Suspect]
     Indication: RENAL CANCER
     Route: 065
     Dates: start: 20080129, end: 20080306
  2. AVASTIN [Suspect]
     Indication: LUNG NEOPLASM MALIGNANT
  3. AVASTIN [Suspect]
     Indication: RENAL CANCER METASTATIC

REACTIONS (2)
  - Renal cell carcinoma [Fatal]
  - Haemoptysis [Unknown]
